FAERS Safety Report 7211118-2 (Version None)
Quarter: 2011Q1

REPORT INFORMATION
  Report Type: 
  Country: None (occurrence: None)
  Receive Date: 20110105
  Receipt Date: 20101222
  Transmission Date: 20110831
  Serious: Yes (Other)
  Sender: FDA-Public Use
  Company Number: FR-AMGEN-FRASP2010010920

PATIENT

DRUGS (5)
  1. VALPROATE SODIUM [Suspect]
  2. TEGELINE                           /00025201/ [Concomitant]
  3. NPLATE [Suspect]
     Indication: PRODUCT USED FOR UNKNOWN INDICATION
     Dosage: 580 A?G, UNK
  4. ENDOXAN                            /00021101/ [Suspect]
  5. TRAMADOL HCL [Suspect]

REACTIONS (4)
  - DRUG INEFFECTIVE [None]
  - SURGERY [None]
  - THERAPEUTIC RESPONSE DECREASED [None]
  - DRUG INTERACTION [None]
